FAERS Safety Report 19726419 (Version 1)
Quarter: 2021Q3

REPORT INFORMATION
  Report Type: Spontaneous
  Country: US (occurrence: US)
  Receive Date: 20210819
  Receipt Date: 20210819
  Transmission Date: 20211014
  Serious: No
  Sender: FDA-Public Use
  Company Number: None

PATIENT
  Age: 70 Year
  Sex: Male

DRUGS (1)
  1. POMALYST [Suspect]
     Active Substance: POMALIDOMIDE
     Indication: PLASMA CELL MYELOMA
     Route: 048
     Dates: start: 20200812

REACTIONS (6)
  - Haematocrit decreased [None]
  - Blood immunoglobulin M increased [None]
  - Hyperproteinaemia [None]
  - Haemoglobin decreased [None]
  - Immunoglobulins abnormal [None]
  - Red cell distribution width increased [None]

NARRATIVE: CASE EVENT DATE: 20210812
